FAERS Safety Report 4503302-3 (Version None)
Quarter: 2004Q4

REPORT INFORMATION
  Report Type: 
  Country: None (occurrence: None)
  Receive Date: 20041117
  Receipt Date: 20041108
  Transmission Date: 20050328
  Serious: Yes (Other)
  Sender: FDA-Public Use
  Company Number: GB-JNJFOC-20041102398

PATIENT
  Age: 63 Year
  Sex: Male

DRUGS (5)
  1. DURAGESIC [Suspect]
     Indication: BACK PAIN
     Route: 062
  2. ZOPICLONE [Concomitant]
     Indication: INSOMNIA
     Dosage: NOCTE
     Route: 049
  3. ROFECOXIB [Concomitant]
     Indication: BONE PAIN
     Route: 049
  4. ACETAMINOPHEN [Concomitant]
     Indication: BONE PAIN
     Route: 049
  5. LACTULOSE [Concomitant]
     Indication: CONSTIPATION
     Route: 049

REACTIONS (2)
  - FEELING COLD [None]
  - HYPOTHERMIA [None]
